FAERS Safety Report 18079661 (Version 1)
Quarter: 2020Q3

REPORT INFORMATION
  Report Type: Report from Study
  Country: BR (occurrence: BR)
  Receive Date: 20200728
  Receipt Date: 20200728
  Transmission Date: 20201103
  Serious: Yes (Other)
  Sender: FDA-Public Use
  Company Number: PHHY2017BR175482

PATIENT
  Sex: Male
  Weight: 70 kg

DRUGS (3)
  1. COSENTYX [Suspect]
     Active Substance: SECUKINUMAB
     Indication: PSORIATIC ARTHROPATHY
     Dosage: 300 MG, QMO
     Route: 058
     Dates: start: 20170813
  2. COSENTYX [Suspect]
     Active Substance: SECUKINUMAB
     Indication: PSORIASIS
     Dosage: 300 MG, QMO
     Route: 058
     Dates: start: 20170126
  3. COSENTYX [Suspect]
     Active Substance: SECUKINUMAB
     Dosage: 2 DF (150 MG), UNK
     Route: 058

REACTIONS (7)
  - Skin lesion [Not Recovered/Not Resolved]
  - Pruritus [Not Recovered/Not Resolved]
  - Weight increased [Unknown]
  - Hypersensitivity [Not Recovered/Not Resolved]
  - Inappropriate schedule of product administration [Unknown]
  - Skin haemorrhage [Not Recovered/Not Resolved]
  - Pigmentation disorder [Not Recovered/Not Resolved]
